FAERS Safety Report 21650126 (Version 3)
Quarter: 2023Q1

REPORT INFORMATION
  Report Type: Report from Study
  Country: EG (occurrence: EG)
  Receive Date: 20221128
  Receipt Date: 20230303
  Transmission Date: 20230417
  Serious: Yes (Other)
  Sender: FDA-Public Use
  Company Number: EG-002147023-NVSC2022EG261939

PATIENT
  Sex: Male

DRUGS (2)
  1. OMNITROPE [Suspect]
     Active Substance: SOMATROPIN
     Indication: Growth hormone deficiency
     Dosage: 0.6 MG, QD
     Route: 058
     Dates: start: 20220526
  2. PIRACETAM [Concomitant]
     Active Substance: PIRACETAM
     Indication: Memory impairment
     Dosage: 5 MG, QD, STARTED SINCE 10 DAYS AGO
     Route: 065

REACTIONS (11)
  - Injection site mass [Not Recovered/Not Resolved]
  - Abdominal pain [Recovering/Resolving]
  - Weight decreased [Recovering/Resolving]
  - Eating disorder [Recovering/Resolving]
  - Injection site pain [Recovering/Resolving]
  - Overdose [Recovered/Resolved]
  - Intentional device misuse [Recovered/Resolved]
  - Medication error [Not Recovered/Not Resolved]
  - Product dose omission issue [Not Recovered/Not Resolved]
  - Inappropriate schedule of product administration [Not Recovered/Not Resolved]
  - Drug ineffective [Not Recovered/Not Resolved]

NARRATIVE: CASE EVENT DATE: 20220101
